FAERS Safety Report 6822817-6 (Version None)
Quarter: 2010Q3

REPORT INFORMATION
  Report Type: 
  Country: None (occurrence: None)
  Receive Date: 20100708
  Receipt Date: 20100702
  Transmission Date: 20110219
  Serious: Yes (Other)
  Sender: FDA-Public Use
  Company Number: US-GILEAD-2010-0029622

PATIENT
  Sex: Female
  Weight: 52.21 kg

DRUGS (18)
  1. LETAIRIS [Suspect]
     Indication: PULMONARY ARTERIAL HYPERTENSION
     Route: 048
     Dates: start: 20090611, end: 20100601
  2. PLAVIX [Concomitant]
  3. COZAAR [Concomitant]
  4. NORVASC [Concomitant]
  5. EXFORGE [Concomitant]
  6. CRESTOR [Concomitant]
  7. LOVAZA [Concomitant]
  8. NITROGLYCERIN [Concomitant]
  9. SINGULAIR [Concomitant]
  10. JANUMET [Concomitant]
  11. OMEPRAZOLE [Concomitant]
  12. ARICEPT [Concomitant]
  13. TRILIPIX [Concomitant]
  14. CENTRUM SILVER [Concomitant]
  15. FERROUS SULFATE [Concomitant]
  16. PHOSCAL D [Concomitant]
  17. CELEBREX [Concomitant]
  18. FORTEO [Concomitant]
     Indication: OSTEOPOROSIS

REACTIONS (2)
  - ANAEMIA [None]
  - RENAL FAILURE [None]
